FAERS Safety Report 11348760 (Version 5)
Quarter: 2015Q4

REPORT INFORMATION
  Report Type: Report from Study
  Country: DE (occurrence: DE)
  Receive Date: 20150806
  Receipt Date: 20151023
  Transmission Date: 20160304
  Serious: Yes (Hospitalization, Other)
  Sender: FDA-Public Use
  Company Number: DE-GILEAD-2015-0165174

PATIENT
  Age: 35 Year
  Sex: Male
  Weight: 60 kg

DRUGS (8)
  1. COPEGUS [Suspect]
     Active Substance: RIBAVIRIN
     Indication: CHRONIC HEPATITIS C
     Dosage: 1000 MG, QD
     Route: 048
     Dates: start: 20150709, end: 2015
  2. DOXYCYCLIN                      /00055701/ [Concomitant]
     Dosage: UNK
     Dates: start: 20150629
  3. TIVICAY [Suspect]
     Active Substance: DOLUTEGRAVIR SODIUM
     Indication: HIV INFECTION
     Dosage: 50 MG, BID
     Route: 048
     Dates: start: 20140801
  4. PANZYTRAT                          /00014701/ [Concomitant]
     Indication: PANCREATIC INSUFFICIENCY
     Dosage: 40 UNKNOWN, TID
     Route: 048
     Dates: start: 20141107
  5. LEDIPASVIR/SOFOSBUVIR [Suspect]
     Active Substance: LEDIPASVIR\SOFOSBUVIR
     Indication: CHRONIC HEPATITIS C
     Dosage: 1 DF, QD
     Route: 048
     Dates: start: 20150709
  6. COPEGUS [Suspect]
     Active Substance: RIBAVIRIN
     Dosage: 800 MG, QD
     Route: 048
     Dates: start: 2015
  7. KALETRA [Suspect]
     Active Substance: LOPINAVIR\RITONAVIR
     Indication: HIV INFECTION
     Dosage: 400 MG, BID
     Route: 048
     Dates: start: 20081101
  8. DEKRISTOL [Concomitant]
     Active Substance: CHOLECALCIFEROL
     Indication: VITAMIN D DEFICIENCY
     Dosage: 20 UNKNOWN, QD
     Route: 048
     Dates: start: 20120105

REACTIONS (5)
  - Syncope [Not Recovered/Not Resolved]
  - Anaemia [Not Recovered/Not Resolved]
  - Bile duct stone [Not Recovered/Not Resolved]
  - Fatigue [Unknown]
  - Headache [Unknown]

NARRATIVE: CASE EVENT DATE: 20150715
